FAERS Safety Report 25346561 (Version 1)
Quarter: 2025Q2

REPORT INFORMATION
  Report Type: Spontaneous
  Country: US (occurrence: None)
  Receive Date: 20250519
  Receipt Date: 20250519
  Transmission Date: 20250716
  Serious: Yes (Hospitalization)
  Sender: FDA-CTU
  Company Number: None

PATIENT
  Sex: Female

DRUGS (3)
  1. OPSUMIT [Suspect]
     Active Substance: MACITENTAN
     Indication: Pulmonary arterial hypertension
     Dosage: FREQUENCY : DAILY;?
     Route: 048
     Dates: start: 20250208
  2. DIGOXIN [Suspect]
     Active Substance: DIGOXIN
  3. REMODULIN [Suspect]
     Active Substance: TREPROSTINIL

REACTIONS (8)
  - Fatigue [None]
  - Dizziness [None]
  - Weight fluctuation [None]
  - Decreased appetite [None]
  - Balance disorder [None]
  - Dizziness [None]
  - Electrolyte imbalance [None]
  - Oedema peripheral [None]
